FAERS Safety Report 4799757-X (Version None)
Quarter: 2005Q4

REPORT INFORMATION
  Report Type: 
  Country: None (occurrence: None)
  Receive Date: 20051012
  Receipt Date: 20051012
  Transmission Date: 20060501
  Serious: Yes (Hospitalization)
  Sender: FDA-Public Use
  Company Number: None

PATIENT
  Sex: Male
  Weight: 72.5755 kg

DRUGS (7)
  1. DIGOXIN [Suspect]
     Indication: ATRIAL FIBRILLATION
     Dosage: 0.25MG PO QD  (THERAPY DATES: PRIOR TO ADMISSION)
     Route: 048
  2. LIPITOR [Concomitant]
  3. IMDUR [Concomitant]
  4. PLAVIX [Concomitant]
  5. COREG [Concomitant]
  6. LASIX [Concomitant]
  7. AMIODARONE HCL [Concomitant]

REACTIONS (2)
  - ASTHENIA [None]
  - DIZZINESS [None]
